FAERS Safety Report 17434118 (Version 5)
Quarter: 2020Q3

REPORT INFORMATION
  Report Type: Report from Study
  Country: GB (occurrence: GB)
  Receive Date: 20200219
  Receipt Date: 20200828
  Transmission Date: 20201102
  Serious: Yes (Death, Life-Threatening, Hospitalization)
  Sender: FDA-Public Use
  Company Number: GB-ASTELLAS-2019US045401

PATIENT
  Age: 69 Year
  Sex: Male

DRUGS (1)
  1. ASG?22CE [Suspect]
     Active Substance: ENFORTUMAB VEDOTIN
     Indication: TRANSITIONAL CELL CARCINOMA
     Dosage: 120 MG, CYCLIC ON 1, 8, 15 OF EACH 28 DAY
     Route: 042
     Dates: start: 20191101, end: 20191101

REACTIONS (5)
  - Cellulitis [Not Recovered/Not Resolved]
  - Oedema peripheral [Not Recovered/Not Resolved]
  - Acute kidney injury [Not Recovered/Not Resolved]
  - Neutrophil count decreased [Not Recovered/Not Resolved]
  - Multiple organ dysfunction syndrome [Fatal]

NARRATIVE: CASE EVENT DATE: 20191108
